FAERS Safety Report 25785950 (Version 1)
Quarter: 2025Q3

REPORT INFORMATION
  Report Type: Spontaneous
  Country: US (occurrence: US)
  Receive Date: 20250910
  Receipt Date: 20250910
  Transmission Date: 20251021
  Serious: No
  Sender: Vantive US Healthcare
  Company Number: US-VANTIVE-2025VAN004082

PATIENT
  Sex: Male

DRUGS (1)
  1. EXTRANEAL [Suspect]
     Active Substance: CALCIUM CHLORIDE\ICODEXTRIN\MAGNESIUM CHLORIDE\SODIUM CHLORIDE\SODIUM LACTATE
     Indication: Peritoneal dialysis
     Route: 033
     Dates: end: 20250902

REACTIONS (4)
  - Herpes zoster [Unknown]
  - Rash pustular [Unknown]
  - Skin burning sensation [Unknown]
  - Pain [Unknown]
